FAERS Safety Report 17137603 (Version 2)
Quarter: 2020Q1

REPORT INFORMATION
  Report Type: Spontaneous
  Country: GR (occurrence: GR)
  Receive Date: 20191210
  Receipt Date: 20200214
  Transmission Date: 20200409
  Serious: Yes (Other)
  Sender: FDA-Public Use
  Company Number: GR-BAXTER-2019BAX025215

PATIENT
  Age: 58 Year
  Sex: Male

DRUGS (5)
  1. VELCADE [Suspect]
     Active Substance: BORTEZOMIB
     Indication: PLASMA CELL LEUKAEMIA
     Dosage: OFF LABEL USE
     Route: 065
     Dates: start: 2018
  2. DEXAMETHASONE. [Suspect]
     Active Substance: DEXAMETHASONE
     Indication: PLASMA CELL LEUKAEMIA
     Dosage: OFF LABEL USE, BOLUS
     Route: 065
     Dates: start: 2018
  3. ENDOXAN 1000 MG - POWDER FOR SOLUTION FOR INJECTION [Suspect]
     Active Substance: CYCLOPHOSPHAMIDE
     Indication: PLASMA CELL LEUKAEMIA
     Dosage: BOLUS
     Route: 065
     Dates: start: 2018
  4. DARZALEX [Suspect]
     Active Substance: DARATUMUMAB
     Indication: PLASMA CELL MYELOMA
     Route: 042
     Dates: start: 2018
  5. DOXIL [Suspect]
     Active Substance: DOXORUBICIN HYDROCHLORIDE
     Indication: PLASMA CELL MYELOMA
     Dosage: BOLUS
     Route: 065
     Dates: start: 2018

REACTIONS (15)
  - Thrombocytopenia [Unknown]
  - Dysphagia [Recovered/Resolved]
  - Cytomegalovirus viraemia [Unknown]
  - Peripheral motor neuropathy [Recovered/Resolved]
  - Paresis [Unknown]
  - Cytomegalovirus infection [Unknown]
  - Lymphopenia [Unknown]
  - Paraesthesia [Recovered/Resolved]
  - Haematotoxicity [Unknown]
  - Respiratory tract infection [Unknown]
  - Pyrexia [Unknown]
  - Dysarthria [Recovered/Resolved]
  - Muscular weakness [Recovered/Resolved]
  - Guillain-Barre syndrome [Recovered/Resolved]
  - Dysstasia [Recovered/Resolved]

NARRATIVE: CASE EVENT DATE: 201812
